FAERS Safety Report 5081012-4 (Version None)
Quarter: 2006Q3

REPORT INFORMATION
  Report Type: 
  Country: None (occurrence: None)
  Receive Date: 20060810
  Receipt Date: 20060801
  Transmission Date: 20061208
  Serious: Yes (Hospitalization)
  Sender: FDA-Public Use
  Company Number: FRWYE450801AUG06

PATIENT
  Age: 71 Year
  Sex: Male

DRUGS (9)
  1. TAZOCILLINE (PIPERACILLIN/TAZOBACTAM, INJECTION) [Suspect]
     Indication: LUNG ABSCESS
     Dosage: 4 G 4X PER 1 DAY INTRAVENOUS
     Route: 042
     Dates: start: 20060518, end: 20060622
  2. FLAGYL [Suspect]
     Indication: LUNG ABSCESS
     Dosage: 500 MG 2X PER 1 DAY INTRAVENOUS
     Route: 042
     Dates: start: 20060518, end: 20060622
  3. INEXIUM (ESOMEPRAZOLE, ,0) [Suspect]
     Indication: LUNG ABSCESS
     Dosage: ORAL
     Route: 048
     Dates: start: 20060518, end: 20060626
  4. VANCOMYCIN [Suspect]
     Indication: LUNG ABSCESS
     Dosage: 2 G 1X PER 2 DAY INTRAVENOUS
     Route: 042
     Dates: start: 20060518, end: 20060622
  5. OMEPRAZOLE [Concomitant]
  6. KARDEGIC (ACETYLSALICLATE LYSINE) [Concomitant]
  7. FRAGMIN [Concomitant]
  8. NOVORAPID (INSULIN ASPART) [Concomitant]
  9. LANTUS [Concomitant]

REACTIONS (4)
  - DERMATITIS BULLOUS [None]
  - PETECHIAE [None]
  - PYREXIA [None]
  - TOXIC SKIN ERUPTION [None]
